FAERS Safety Report 18121134 (Version 1)
Quarter: 2020Q3

REPORT INFORMATION
  Report Type: Other
  Country: US (occurrence: US)
  Receive Date: 20200807
  Receipt Date: 20200807
  Transmission Date: 20201103
  Serious: Yes (Other)
  Sender: FDA-Public Use
  Company Number: US-ROCHE-2543317

PATIENT
  Sex: Female

DRUGS (2)
  1. ACTEMRA [Suspect]
     Active Substance: TOCILIZUMAB
     Indication: GIANT CELL ARTERITIS
     Dosage: INJECT 1ACTPEN SUBCUTANEOUSLY EVERY WEEK
     Route: 058
  2. ACTEMRA [Suspect]
     Active Substance: TOCILIZUMAB

REACTIONS (2)
  - Cough [Unknown]
  - Recurrent cancer [Unknown]
